FAERS Safety Report 7437112-4 (Version None)
Quarter: 2011Q2

REPORT INFORMATION
  Report Type: 
  Country: None (occurrence: None)
  Receive Date: 20110426
  Receipt Date: 20110418
  Transmission Date: 20111010
  Serious: Yes (Hospitalization)
  Sender: FDA-Public Use
  Company Number: SE-SANOFI-AVENTIS-2011SA023834

PATIENT
  Age: 88 Year
  Sex: Male

DRUGS (4)
  1. ENALAPRIL [Suspect]
     Indication: ATRIAL FIBRILLATION
  2. ACETAMINOPHEN [Concomitant]
  3. ZOLPIDEM TARTRATE [Concomitant]
  4. LASIX [Suspect]
     Route: 048
     Dates: end: 20110217

REACTIONS (2)
  - ORTHOSTATIC HYPOTENSION [None]
  - SYNCOPE [None]
